FAERS Safety Report 16357415 (Version 1)
Quarter: 2019Q2

REPORT INFORMATION
  Report Type: Spontaneous
  Country: US (occurrence: US)
  Receive Date: 20190527
  Receipt Date: 20190527
  Transmission Date: 20190711
  Serious: Yes (Hospitalization, Other)
  Sender: FDA-Public Use
  Company Number: US-GLAXOSMITHKLINE-US2019093307

PATIENT
  Age: 44 Year
  Sex: Female

DRUGS (1)
  1. BENLYSTA [Suspect]
     Active Substance: BELIMUMAB
     Indication: PRODUCT USED FOR UNKNOWN INDICATION
     Dosage: 750MG EVERY 4 WEEKS
     Route: 042
     Dates: start: 201709, end: 201904

REACTIONS (5)
  - Product dose omission [Unknown]
  - Condition aggravated [Not Recovered/Not Resolved]
  - Arteriospasm coronary [Not Recovered/Not Resolved]
  - Tachycardia [Not Recovered/Not Resolved]
  - Adrenal gland cancer [Not Recovered/Not Resolved]

NARRATIVE: CASE EVENT DATE: 201903
